FAERS Safety Report 12370510 (Version 1)
Quarter: 2016Q2

REPORT INFORMATION
  Report Type: Spontaneous
  Country: US (occurrence: None)
  Receive Date: 20160513
  Receipt Date: 20160513
  Transmission Date: 20160815
  Serious: No
  Sender: FDA-Public Use
  Company Number: None

PATIENT
  Age: 86 Year
  Sex: Female

DRUGS (1)
  1. PROLIA [Suspect]
     Active Substance: DENOSUMAB
     Indication: OSTEOPOROSIS
     Dosage: 60MG Q6M SQ
     Route: 058
     Dates: start: 20160125, end: 20160512

REACTIONS (5)
  - Bone pain [None]
  - Nausea [None]
  - Feeling hot [None]
  - Nonspecific reaction [None]
  - Hyperhidrosis [None]

NARRATIVE: CASE EVENT DATE: 20160512
